FAERS Safety Report 21969022 (Version 4)
Quarter: 2023Q2

REPORT INFORMATION
  Report Type: Spontaneous
  Country: US (occurrence: US)
  Receive Date: 20230208
  Receipt Date: 20230426
  Transmission Date: 20230722
  Serious: Yes (Hospitalization)
  Sender: FDA-Public Use
  Company Number: US-BRISTOL-MYERS SQUIBB COMPANY-2023-018007

PATIENT
  Age: 72 Year
  Sex: Female

DRUGS (1)
  1. POMALYST [Suspect]
     Active Substance: POMALIDOMIDE
     Indication: Plasma cell myeloma recurrent
     Dosage: TAKE 1 CAPSULE WHOLE BY MOUTH WITH WATER, 2HRS AWAY FROM FOOD, AT ABOUT SAME TIME DAILY FOR 21 DAYS
     Route: 048
     Dates: start: 20180425, end: 20230329

REACTIONS (2)
  - Cholelithiasis [Recovered/Resolved]
  - Malaise [Unknown]
